FAERS Safety Report 7293388-8 (Version None)
Quarter: 2011Q1

REPORT INFORMATION
  Report Type: 
  Country: None (occurrence: None)
  Receive Date: 20110215
  Receipt Date: 20110214
  Transmission Date: 20110831
  Serious: Yes (Hospitalization)
  Sender: FDA-Public Use
  Company Number: CA-ROCHE-751161

PATIENT
  Sex: Female
  Weight: 65.5 kg

DRUGS (10)
  1. ELTROXIN [Concomitant]
  2. RANITIDINE [Concomitant]
     Dates: start: 20101015
  3. GRAVOL TAB [Concomitant]
     Dates: start: 20101015
  4. BLINDED BEVACIZUMAB [Suspect]
     Indication: GLIOBLASTOMA
     Dosage: LAST DOSE PRIOR TO SAE: 15 DECEMBER 2010. DOSAGE FORM: LIQUID. TEMPORARILY INTERRUPTED
     Route: 042
     Dates: start: 20101117, end: 20101229
  5. PROCHLORPERAZINE [Concomitant]
     Dates: start: 20101202
  6. TEMOZOLOMIDE [Suspect]
     Indication: GLIOBLASTOMA
     Dosage: TEMPORARILY INTERRUPTED. LAST DOSE PRIOR TO SAE: 23 DECEMBER 2010.
     Route: 048
     Dates: start: 20101117, end: 20101224
  7. BLINDED BEVACIZUMAB [Suspect]
     Dosage: RESTARTED
     Route: 042
     Dates: start: 20110106
  8. TEMOZOLOMIDE [Suspect]
     Dosage: RESTARTED
     Route: 048
     Dates: start: 20101226
  9. TYLENOL W/ CODEINE NO. 3 [Concomitant]
     Dosage: TOTAL DAILY DOSE: 1-3 TABS
     Dates: start: 20101015
  10. ZOPICLONE [Concomitant]
     Dates: start: 20101015

REACTIONS (2)
  - NEOPLASM PROGRESSION [None]
  - GLIOBLASTOMA [None]
